FAERS Safety Report 5241247-4 (Version None)
Quarter: 2007Q1

REPORT INFORMATION
  Report Type: 
  Country: None (occurrence: None)
  Receive Date: 20070220
  Receipt Date: 20070126
  Transmission Date: 20070707
  Serious: Yes (Other)
  Sender: FDA-Public Use
  Company Number: FI-RB-005267-07

PATIENT
  Age: 26 Year
  Sex: Male

DRUGS (4)
  1. SUBOXONE [Suspect]
     Route: 060
     Dates: start: 20060308
  2. RIVATRIL [Concomitant]
     Indication: DRUG USE FOR UNKNOWN INDICATION
     Route: 048
  3. DOXAL [Concomitant]
     Indication: DRUG USE FOR UNKNOWN INDICATION
     Dosage: 1-2 TABLETS AT NIGHT
     Route: 048
  4. INSOMIN [Concomitant]
     Indication: DRUG USE FOR UNKNOWN INDICATION
     Dosage: 1-2 TABLETS AT NIGHT
     Route: 048

REACTIONS (4)
  - DENTAL CARIES [None]
  - RASH PRURITIC [None]
  - TOOTH EROSION [None]
  - TOOTHACHE [None]
